FAERS Safety Report 25239876 (Version 1)
Quarter: 2025Q2

REPORT INFORMATION
  Report Type: Spontaneous
  Country: ES (occurrence: ES)
  Receive Date: 20250425
  Receipt Date: 20250425
  Transmission Date: 20250716
  Serious: Yes (Hospitalization)
  Sender: MYLAN
  Company Number: ES-MYLANLABS-2025M1035730

PATIENT
  Age: 48 Year
  Sex: Male

DRUGS (29)
  1. ARIPIPRAZOLE [Suspect]
     Active Substance: ARIPIPRAZOLE
     Indication: Schizoaffective disorder
     Dosage: 5 MILLIGRAM, QD
  2. SERTRALINE [Suspect]
     Active Substance: SERTRALINE HYDROCHLORIDE
     Indication: Schizoaffective disorder
     Dosage: 300 MILLIGRAM, QD
  3. RISPERIDONE [Suspect]
     Active Substance: RISPERIDONE
     Indication: Schizoaffective disorder
     Dosage: 3 MILLIGRAM, QD
  4. CLOZAPINE [Suspect]
     Active Substance: CLOZAPINE
     Indication: Schizoaffective disorder
  5. CLOZAPINE [Suspect]
     Active Substance: CLOZAPINE
     Dosage: 125 MILLIGRAM, QD, ON DAY 7
  6. CLOZAPINE [Suspect]
     Active Substance: CLOZAPINE
     Dosage: 200 MILLIGRAM, QD, ON DAY 14
  7. CLOZAPINE [Suspect]
     Active Substance: CLOZAPINE
     Dosage: 300 MILLIGRAM, QD
  8. CLOZAPINE [Suspect]
     Active Substance: CLOZAPINE
     Dosage: 25 MILLIGRAM, QD, DAY 1 OF SECOND TITRATION
  9. CLOZAPINE [Suspect]
     Active Substance: CLOZAPINE
     Dosage: 50 MILLIGRAM, QD, DAY 4 OF SECOND TITRATION
  10. CLOZAPINE [Suspect]
     Active Substance: CLOZAPINE
     Dosage: 75 MILLIGRAM, QD, DAY 5 OF SECOND TITRATION
  11. CLOZAPINE [Suspect]
     Active Substance: CLOZAPINE
     Dosage: 125 MILLIGRAM, QD, DAY 8 OF SECOND TITRATION
  12. CLOZAPINE [Suspect]
     Active Substance: CLOZAPINE
     Dosage: 175 MILLIGRAM, QD, DAY 12 OF SECOND TITRATION
  13. CLOZAPINE [Suspect]
     Active Substance: CLOZAPINE
     Dosage: 225 MILLIGRAM, QD, DAY 14 OF SECOND TITRATION
  14. CLOZAPINE [Suspect]
     Active Substance: CLOZAPINE
     Dosage: 250 MILLIGRAM, QD, DAY 20 OF SECOND TITRATION
  15. CLOZAPINE [Suspect]
     Active Substance: CLOZAPINE
     Dosage: 275 MILLIGRAM, QD, DAY 22 OF SECOND TITRATION
  16. CLOZAPINE [Suspect]
     Active Substance: CLOZAPINE
     Dosage: 300 MILLIGRAM, QD, DAY 30 OF SECOND TITRATION
  17. CLOZAPINE [Suspect]
     Active Substance: CLOZAPINE
     Dosage: 350 MILLIGRAM, QD, DAY 34 OF SECOND TITRATION
  18. CLOZAPINE [Suspect]
     Active Substance: CLOZAPINE
     Dosage: 400 MILLIGRAM, QD, DAY 36 OF SECOND TITRATION
  19. CLOZAPINE [Suspect]
     Active Substance: CLOZAPINE
     Dosage: 500 MILLIGRAM, QD
  20. VENLAFAXINE [Suspect]
     Active Substance: VENLAFAXINE HYDROCHLORIDE
     Indication: Schizoaffective disorder
  21. VENLAFAXINE [Suspect]
     Active Substance: VENLAFAXINE HYDROCHLORIDE
     Dosage: 300 MILLIGRAM, QD, ON DAY 9
  22. VENLAFAXINE [Suspect]
     Active Substance: VENLAFAXINE HYDROCHLORIDE
     Dosage: 375 MILLIGRAM, QD, ON DAY 49
  23. VENLAFAXINE [Suspect]
     Active Substance: VENLAFAXINE HYDROCHLORIDE
     Dosage: 300 MILLIGRAM, QD
  24. LORAZEPAM [Suspect]
     Active Substance: LORAZEPAM
     Indication: Schizoaffective disorder
     Dosage: 2 MILLIGRAM, QD
  25. IMMUNE GLOBULIN NOS [Suspect]
     Active Substance: IMMUNE GLOBULIN NOS
     Indication: Dropped head syndrome
  26. ACETYLCARNITINE [Suspect]
     Active Substance: ACETYLCARNITINE
     Indication: Dropped head syndrome
  27. PALIPERIDONE [Concomitant]
     Active Substance: PALIPERIDONE
     Indication: Schizoaffective disorder
     Dosage: 18 MILLIGRAM, QD
  28. BIPERIDEN [Concomitant]
     Active Substance: BIPERIDEN
     Indication: Drug therapy
  29. METHYLPREDNISOLONE [Concomitant]
     Active Substance: METHYLPREDNISOLONE
     Indication: Dropped head syndrome

REACTIONS (5)
  - Dropped head syndrome [Recovered/Resolved]
  - Rebound effect [Unknown]
  - Schizoaffective disorder [Unknown]
  - Intentional product misuse [Unknown]
  - Drug ineffective [Unknown]
